FAERS Safety Report 24153840 (Version 2)
Quarter: 2024Q3

REPORT INFORMATION
  Report Type: Spontaneous
  Country: GR (occurrence: GR)
  Receive Date: 20240730
  Receipt Date: 20240823
  Transmission Date: 20241016
  Serious: Yes (Life-Threatening, Hospitalization, Other)
  Sender: ALEXION PHARMACEUTICALS
  Company Number: GR-ALXN-202407EEA001933GR

PATIENT
  Sex: Female
  Weight: 75 kg

DRUGS (2)
  1. ULTOMIRIS [Suspect]
     Active Substance: RAVULIZUMAB-CWVZ
     Indication: Myasthenia gravis
     Dosage: UNK
     Route: 065
  2. FENTANYL [Suspect]
     Active Substance: FENTANYL\FENTANYL CITRATE
     Indication: Procedural pain
     Dosage: UNK
     Route: 065

REACTIONS (3)
  - Acute respiratory failure [Unknown]
  - Myasthenia gravis crisis [Unknown]
  - Procedural pain [Unknown]
